FAERS Safety Report 25406224 (Version 1)
Quarter: 2025Q2

REPORT INFORMATION
  Report Type: Spontaneous
  Country: IN (occurrence: None)
  Receive Date: 20250604
  Receipt Date: 20250604
  Transmission Date: 20250717
  Serious: Yes (Hospitalization)
  Sender: FDA-CTU
  Company Number: None

PATIENT
  Age: 24 Year
  Sex: Female
  Weight: 64 kg

DRUGS (1)
  1. UNAPPROVED DRUG COSMETIC PRODUCTS [Suspect]
     Active Substance: UNAPPROVED DRUG COSMETIC PRODUCTS
     Indication: Skin hypopigmentation
     Dosage: OTHER QUANTITY : 2 DROP(S);?FREQUENCY : TWICE A DAY;?
     Route: 061
     Dates: start: 20250520, end: 20250521

REACTIONS (6)
  - Application site pain [None]
  - Application site inflammation [None]
  - Application site erythema [None]
  - Application site dryness [None]
  - Skin disorder [None]
  - Product formulation issue [None]

NARRATIVE: CASE EVENT DATE: 20250520
